FAERS Safety Report 6479547-2 (Version None)
Quarter: 2009Q4

REPORT INFORMATION
  Report Type: 
  Country: None (occurrence: None)
  Receive Date: 20091208
  Receipt Date: 20091130
  Transmission Date: 20100525
  Serious: Yes (Hospitalization)
  Sender: FDA-Public Use
  Company Number: FR-ELI_LILLY_AND_COMPANY-FR200909006629

PATIENT
  Age: 73 Year
  Sex: Male

DRUGS (6)
  1. BYETTA [Suspect]
     Indication: TYPE 2 DIABETES MELLITUS
     Dosage: 20 UG, DAILY (1/D)
     Route: 058
     Dates: start: 20090903, end: 20090909
  2. PRAVASTATIN [Concomitant]
     Dosage: 20 UG, DAILY (1/D)
  3. LERCANIDIPINE [Concomitant]
     Dosage: 10 MG, DAILY (1/D)
  4. TANAKAN [Concomitant]
     Dosage: 3 D/F, DAILY (1/D)
  5. APROVEL [Concomitant]
     Dosage: 150 MG, DAILY (1/D)
  6. KARDEGIC [Concomitant]
     Dosage: 160 MG, DAILY (1/D)

REACTIONS (4)
  - ARTERIAL DISORDER [None]
  - ERYSIPELAS [None]
  - FEMORAL ARTERY OCCLUSION [None]
  - SKIN ULCER [None]
